FAERS Safety Report 21830235 (Version 1)
Quarter: 2023Q1

REPORT INFORMATION
  Report Type: Spontaneous
  Country: CN (occurrence: CN)
  Receive Date: 20230106
  Receipt Date: 20230106
  Transmission Date: 20230418
  Serious: Yes (Hospitalization, Other)
  Sender: FDA-Public Use
  Company Number: CN-MYLANLABS-2023M1000805

PATIENT
  Age: 12 Year
  Sex: Female
  Weight: 47 kg

DRUGS (1)
  1. ZOLOFT [Suspect]
     Active Substance: SERTRALINE HYDROCHLORIDE
     Indication: Conversion disorder
     Dosage: 50 MILLIGRAM, QD(50 MG, QN, PO)
     Route: 048
     Dates: start: 20211214

REACTIONS (4)
  - Syncope [Recovered/Resolved]
  - Loss of consciousness [Unknown]
  - Palpitations [Unknown]
  - Nausea [Unknown]
